FAERS Safety Report 8018542-9 (Version None)
Quarter: 2012Q1

REPORT INFORMATION
  Report Type: 
  Country: None (occurrence: None)
  Receive Date: 20120103
  Receipt Date: 20111226
  Transmission Date: 20120608
  Serious: Yes (Hospitalization)
  Sender: FDA-Public Use
  Company Number: JP-ELI_LILLY_AND_COMPANY-JP201112007294

PATIENT
  Age: 95 Year
  Sex: Male

DRUGS (1)
  1. FORTEO [Suspect]
     Indication: OSTEOPOROSIS
     Dosage: 20 UNK, UNK
     Route: 058

REACTIONS (3)
  - BACK PAIN [None]
  - DUODENAL ULCER [None]
  - DUODENAL PERFORATION [None]
